FAERS Safety Report 8246308-3 (Version None)
Quarter: 2012Q1

REPORT INFORMATION
  Report Type: 
  Country: None (occurrence: None)
  Receive Date: 20120330
  Receipt Date: 20120320
  Transmission Date: 20120608
  Serious: No
  Sender: FDA-Public Use
  Company Number: US-B.I. PHARMACEUTICALS,INC./RIDGEFIELD-2012-BP-03481BP

PATIENT
  Sex: Female

DRUGS (4)
  1. DUONEB [Concomitant]
     Indication: CHRONIC OBSTRUCTIVE PULMONARY DISEASE
     Dates: start: 20120113
  2. COUMADIN [Concomitant]
     Indication: THROMBOCYTOSIS
  3. SPIRIVA [Suspect]
     Indication: CHRONIC OBSTRUCTIVE PULMONARY DISEASE
     Dates: start: 20080401
  4. COUMADIN [Concomitant]
     Indication: DEEP VEIN THROMBOSIS

REACTIONS (2)
  - HYPOGEUSIA [None]
  - AGEUSIA [None]
